FAERS Safety Report 11718768 (Version 1)
Quarter: 2015Q4

REPORT INFORMATION
  Report Type: Spontaneous
  Country: US (occurrence: None)
  Receive Date: 20151109
  Receipt Date: 20151109
  Transmission Date: 20160304
  Serious: No
  Sender: FDA-Public Use
  Company Number: None

PATIENT
  Age: 47 Year
  Sex: Female

DRUGS (8)
  1. SPIRONOLACT [Concomitant]
  2. TYKERB [Suspect]
     Active Substance: LAPATINIB DITOSYLATE
     Indication: BONE CANCER
     Route: 048
     Dates: start: 20151028
  3. ONDANSETRON [Concomitant]
     Active Substance: ONDANSETRON
  4. LEVETIRACETA [Concomitant]
  5. PHOCHLORPER [Concomitant]
  6. DEXAMETHASON [Concomitant]
     Active Substance: DEXAMETHASONE
  7. TYKERB [Suspect]
     Active Substance: LAPATINIB DITOSYLATE
     Indication: BREAST CANCER
     Route: 048
     Dates: start: 20151028
  8. AFINITOR [Concomitant]
     Active Substance: EVEROLIMUS

REACTIONS (4)
  - Dehydration [None]
  - Blood sodium abnormal [None]
  - Nausea [None]
  - Vomiting [None]

NARRATIVE: CASE EVENT DATE: 20151102
